FAERS Safety Report 19166560 (Version 2)
Quarter: 2021Q2

REPORT INFORMATION
  Report Type: Spontaneous
  Country: US (occurrence: US)
  Receive Date: 20210422
  Receipt Date: 20210514
  Transmission Date: 20210717
  Serious: Yes (Other)
  Sender: FDA-Public Use
  Company Number: US-UROGEN PHARMA LTD.-2021-UGN-000020

PATIENT
  Sex: Male

DRUGS (3)
  1. JELMYTO [Suspect]
     Active Substance: MITOMYCIN
     Indication: TRANSITIONAL CELL CANCER OF THE RENAL PELVIS AND URETER
     Dosage: UNK (INSTILLATION)
     Dates: start: 20210318, end: 20210318
  2. JELMYTO [Suspect]
     Active Substance: MITOMYCIN
     Dosage: UNK (INSTILLATION)
     Dates: start: 202105, end: 202105
  3. JELMYTO [Suspect]
     Active Substance: MITOMYCIN
     Dosage: UNK (INSTILLATION)
     Dates: start: 2021, end: 2021

REACTIONS (1)
  - Renal haemorrhage [Recovered/Resolved]

NARRATIVE: CASE EVENT DATE: 20210414
